FAERS Safety Report 7165072-2 (Version None)
Quarter: 2010Q4

REPORT INFORMATION
  Report Type: 
  Country: None (occurrence: None)
  Receive Date: 20101215
  Receipt Date: 20091217
  Transmission Date: 20110411
  Serious: No
  Sender: FDA-Public Use
  Company Number: US-AMGEN-KDL381271

PATIENT

DRUGS (3)
  1. ENBREL [Suspect]
     Indication: PSORIATIC ARTHROPATHY
     Dosage: 50 MG, QWK
     Route: 058
     Dates: start: 20040521
  2. ENBREL [Suspect]
     Indication: PSORIASIS
  3. ADALIMUMAB [Suspect]

REACTIONS (8)
  - ARTHRALGIA [None]
  - HYPERSENSITIVITY [None]
  - NASAL CONGESTION [None]
  - NASOPHARYNGITIS [None]
  - PAIN IN EXTREMITY [None]
  - PSORIATIC ARTHROPATHY [None]
  - RASH GENERALISED [None]
  - RHINORRHOEA [None]
